FAERS Safety Report 24869510 (Version 1)
Quarter: 2025Q1

REPORT INFORMATION
  Report Type: Spontaneous
  Country: JP (occurrence: JP)
  Receive Date: 20250121
  Receipt Date: 20250121
  Transmission Date: 20250408
  Serious: Yes (Other)
  Sender: PFIZER
  Company Number: JP-PFIZER INC-PV202500006043

PATIENT
  Age: 1 Year
  Sex: Male

DRUGS (1)
  1. METHYLPREDNISOLONE SODIUM SUCCINATE [Suspect]
     Active Substance: METHYLPREDNISOLONE SODIUM SUCCINATE
     Indication: Spinal cord injury
     Dosage: 3 MG/KG, DAILY
     Route: 042

REACTIONS (3)
  - Gastrointestinal haemorrhage [Unknown]
  - Impaired healing [Unknown]
  - Off label use [Unknown]
